FAERS Safety Report 19687562 (Version 1)
Quarter: 2021Q3

REPORT INFORMATION
  Report Type: Spontaneous
  Country: ES (occurrence: ES)
  Receive Date: 20210811
  Receipt Date: 20210811
  Transmission Date: 20211014
  Serious: Yes (Other)
  Sender: FDA-Public Use
  Company Number: NVSC2021ES174855

PATIENT
  Age: 68 Year
  Sex: Male
  Weight: 126 kg

DRUGS (1)
  1. COSENTYX [Suspect]
     Active Substance: SECUKINUMAB
     Indication: PSORIASIS
     Dosage: 300 MG, Q4W (300 MG CADA 4 SEMANAS) (COSENTYX 150 MG SOLUCION INYECTABLE EN PLUMA PRECARGADA, 2 PLUM
     Route: 058
     Dates: start: 20190924, end: 20210611

REACTIONS (1)
  - Interstitial lung disease [Unknown]

NARRATIVE: CASE EVENT DATE: 20210602
